FAERS Safety Report 16143274 (Version 1)
Quarter: 2019Q2

REPORT INFORMATION
  Report Type: Spontaneous
  Country: PT (occurrence: PT)
  Receive Date: 20190401
  Receipt Date: 20190401
  Transmission Date: 20190711
  Serious: Yes (Hospitalization, Other)
  Sender: FDA-Public Use
  Company Number: PT-JNJFOC-20190342352

PATIENT
  Age: 39 Year
  Sex: Male

DRUGS (5)
  1. RISPERIDONE. [Suspect]
     Active Substance: RISPERIDONE
     Indication: SCHIZOPHRENIA
     Route: 065
  2. AZITHROMYCIN ANHYDROUS. [Interacting]
     Active Substance: AZITHROMYCIN ANHYDROUS
     Indication: PRODUCT USED FOR UNKNOWN INDICATION
     Route: 065
  3. FLUVOXAMINE [Interacting]
     Active Substance: FLUVOXAMINE
     Indication: SCHIZOPHRENIA
     Route: 065
  4. AMLODIPINE W/PERINDOPRIL [Concomitant]
     Active Substance: AMLODIPINE BESYLATE\PERINDOPRIL
     Route: 065
  5. CHLORPROMAZINE. [Interacting]
     Active Substance: CHLORPROMAZINE
     Indication: SCHIZOPHRENIA
     Route: 065

REACTIONS (2)
  - Rhabdomyolysis [Unknown]
  - Drug interaction [Unknown]
